FAERS Safety Report 18415691 (Version 1)
Quarter: 2020Q4

REPORT INFORMATION
  Report Type: Spontaneous
  Country: CN (occurrence: CN)
  Receive Date: 20201022
  Receipt Date: 20201022
  Transmission Date: 20210114
  Serious: Yes (Hospitalization)
  Sender: FDA-Public Use
  Company Number: CN-PFIZER INC-2020407527

PATIENT
  Age: 18 Day
  Sex: Female
  Weight: 3.54 kg

DRUGS (1)
  1. ZITHROMAX [Suspect]
     Active Substance: AZITHROMYCIN DIHYDRATE
     Indication: ANTI-INFECTIVE THERAPY
     Dosage: 0.030 MG, 1X/DAY
     Route: 048
     Dates: start: 20200918, end: 20200922

REACTIONS (3)
  - Haematochezia [Recovering/Resolving]
  - Gastrointestinal disorder [Recovering/Resolving]
  - Faeces discoloured [Recovering/Resolving]

NARRATIVE: CASE EVENT DATE: 20200922
